FAERS Safety Report 7817876-8 (Version None)
Quarter: 2011Q4

REPORT INFORMATION
  Report Type: 
  Country: None (occurrence: None)
  Receive Date: 20111017
  Receipt Date: 20111011
  Transmission Date: 20120403
  Serious: Yes (Hospitalization, Disabling)
  Sender: FDA-Public Use
  Company Number: US-MERCK-1106USA00663

PATIENT
  Age: 68 Year
  Sex: Female
  Weight: 62 kg

DRUGS (9)
  1. FOSAMAX [Suspect]
     Indication: OSTEOPOROSIS
     Route: 048
     Dates: start: 20030101, end: 20090101
  2. VITAMIN D (UNSPECIFIED) [Concomitant]
     Route: 065
     Dates: start: 20010101
  3. FOSAMAX PLUS D [Suspect]
     Indication: OSTEOPOROSIS
     Route: 065
  4. CHONDROITIN SULFATE SODIUM AND GLUCOSAMINE SULFATE [Concomitant]
     Route: 065
     Dates: start: 20010101
  5. SYNTHROID [Concomitant]
     Indication: HYPOTHYROIDISM
     Route: 065
     Dates: start: 20010101
  6. THYROID [Concomitant]
     Route: 065
     Dates: start: 19710101
  7. CALCIUM (UNSPECIFIED) [Concomitant]
     Route: 065
     Dates: start: 20010101
  8. FOSAMAX [Suspect]
     Indication: OSTEOPENIA
     Route: 048
     Dates: start: 20030101, end: 20090101
  9. FOSAMAX PLUS D [Suspect]
     Indication: OSTEOPENIA
     Route: 065

REACTIONS (10)
  - LOW TURNOVER OSTEOPATHY [None]
  - HYPERCHOLESTEROLAEMIA [None]
  - NAUSEA [None]
  - VOMITING [None]
  - FEMUR FRACTURE [None]
  - IMPAIRED HEALING [None]
  - HYPERTENSION [None]
  - OSTEOPOROSIS [None]
  - TOOTH DISORDER [None]
  - FALL [None]
